FAERS Safety Report 11064369 (Version 1)
Quarter: 2015Q2

REPORT INFORMATION
  Report Type: Spontaneous
  Country: US (occurrence: US)
  Receive Date: 20150424
  Receipt Date: 20150424
  Transmission Date: 20150821
  Serious: Yes (Other)
  Sender: FDA-Public Use
  Company Number: US-ELI_LILLY_AND_COMPANY-US201504004875

PATIENT
  Sex: Male

DRUGS (2)
  1. LANTUS [Concomitant]
     Active Substance: INSULIN GLARGINE
  2. HUMALOG [Suspect]
     Active Substance: INSULIN LISPRO
     Indication: DIABETES MELLITUS
     Dosage: 15 U, OTHER
     Route: 065
     Dates: start: 2003

REACTIONS (5)
  - Malaise [Unknown]
  - Fatigue [Unknown]
  - Renal impairment [Unknown]
  - Eye disorder [Unknown]
  - Drug dose omission [Unknown]
